FAERS Safety Report 8050679-0 (Version None)
Quarter: 2012Q1

REPORT INFORMATION
  Report Type: 
  Country: None (occurrence: None)
  Receive Date: 20120117
  Receipt Date: 20120117
  Transmission Date: 20120608
  Serious: Yes (Hospitalization)
  Sender: FDA-Public Use
  Company Number: None

PATIENT
  Age: 54 Year
  Sex: Male
  Weight: 83.914 kg

DRUGS (3)
  1. SAW PALMETTO [Concomitant]
     Indication: PROSTATIC DISORDER
     Dosage: UNKNOWN
  2. XARELTO [Suspect]
     Indication: POSTOPERATIVE CARE
     Dosage: 10 MG
     Dates: start: 20120104, end: 20120112
  3. XARELTO [Suspect]
     Indication: THROMBOSIS PROPHYLAXIS
     Dosage: 10 MG
     Dates: start: 20120104, end: 20120112

REACTIONS (2)
  - SURGICAL PROCEDURE REPEATED [None]
  - POST PROCEDURAL HAEMORRHAGE [None]
